FAERS Safety Report 4872425-1 (Version None)
Quarter: 2005Q4

REPORT INFORMATION
  Report Type: 
  Country: None (occurrence: None)
  Receive Date: 20051115
  Receipt Date: 20050725
  Transmission Date: 20060501
  Serious: Yes (Hospitalization)
  Sender: FDA-Public Use
  Company Number: 411985

PATIENT
  Age: 38 Year
  Sex: Male
  Weight: 79.4 kg

DRUGS (2)
  1. PEGASYS [Suspect]
     Indication: HEPATITIS C VIRUS
     Dosage: 180 MCG 1 PER 1 WEEK SUBCUTANEOUS
     Route: 058
     Dates: start: 20040815, end: 20041215
  2. COPEGUS [Suspect]
     Indication: HEPATITIS C VIRUS
     Dosage: ORAL
     Route: 048
     Dates: start: 20040815, end: 20041215

REACTIONS (4)
  - HAEMOGLOBIN DECREASED [None]
  - PERITONEAL INFECTION [None]
  - PYREXIA [None]
  - VOMITING [None]
